FAERS Safety Report 20099328 (Version 1)
Quarter: 2021Q4

REPORT INFORMATION
  Report Type: Other
  Country: AU (occurrence: None)
  Receive Date: 20211122
  Receipt Date: 20211122
  Transmission Date: 20220303
  Serious: Yes (Other)
  Sender: FDA-Public Use
  Company Number: AU-ROCHE-2956571

PATIENT
  Age: 40 Year
  Sex: Female

DRUGS (6)
  1. OCRELIZUMAB [Suspect]
     Active Substance: OCRELIZUMAB
     Indication: Multiple sclerosis
     Dosage: TWO 300 MG FORTNIGHTLY INFUSIONS WITH THE PLAN FOR SUBSEQUENT 600 MG SIX MONTHLY INFUSIONS
     Route: 065
  2. PREDNISOLONE ACETATE [Concomitant]
     Active Substance: PREDNISOLONE ACETATE
     Route: 065
  3. PREDNISOLONE [Concomitant]
     Active Substance: PREDNISOLONE
     Dosage: 100 MG DAILY FOR 3 WEEKS AND SLOWLY TAPERED OVER FURTHER 6 WEEKS
     Route: 048
  4. TRIAMCINOLONE [Concomitant]
     Active Substance: TRIAMCINOLONE
     Dosage: 40 MG (1 ML) INJECTIONS
  5. ATROPINE [Concomitant]
     Active Substance: ATROPINE
     Dosage: 1 % BD
  6. BRIMONIDINE [Concomitant]
     Active Substance: BRIMONIDINE TARTRATE
     Dosage: 0.2% WAS INTRODUCED BD TO THE RIGHT EYE
     Route: 061

REACTIONS (1)
  - Cellulitis [Recovered/Resolved]
